FAERS Safety Report 10572064 (Version 2)
Quarter: 2014Q4

REPORT INFORMATION
  Report Type: Spontaneous
  Country: JP (occurrence: JP)
  Receive Date: 20141107
  Receipt Date: 20141107
  Transmission Date: 20150529
  Serious: Yes (Hospitalization, Other)
  Sender: FDA-Public Use
  Company Number: JP-GLAXOSMITHKLINE-JP2014JPN004099

PATIENT
  Age: 5 Decade
  Sex: Female

DRUGS (1)
  1. REVOLADE [Suspect]
     Active Substance: ELTROMBOPAG
     Indication: IMMUNE THROMBOCYTOPENIC PURPURA
     Dosage: 12.5 MG, QD
     Route: 048
     Dates: start: 20121002, end: 201306

REACTIONS (7)
  - Oedema peripheral [Recovering/Resolving]
  - Pulmonary embolism [Recovering/Resolving]
  - Vena cava thrombosis [Recovering/Resolving]
  - Inflammation [Recovered/Resolved]
  - Pelvic venous thrombosis [Recovering/Resolving]
  - Back pain [Recovered/Resolved]
  - Device related infection [Recovered/Resolved]

NARRATIVE: CASE EVENT DATE: 201306
